FAERS Safety Report 5571699-1 (Version None)
Quarter: 2007Q4

REPORT INFORMATION
  Report Type: 
  Country: None (occurrence: None)
  Receive Date: 20071221
  Receipt Date: 20071212
  Transmission Date: 20080405
  Serious: Yes (Death, Life-Threatening, Congenital Anomaly)
  Sender: FDA-Public Use
  Company Number: A0668207A

PATIENT
  Sex: Male
  Weight: 2.8 kg

DRUGS (3)
  1. PAXIL [Suspect]
     Indication: ANXIETY
     Dosage: 20MG PER DAY
     Dates: start: 20020304, end: 20020531
  2. PAXIL CR [Suspect]
     Indication: ANXIETY
     Dosage: 12.5MG PER DAY
     Dates: start: 20020601, end: 20030325
  3. PRILOSEC [Concomitant]

REACTIONS (18)
  - AFFECTIVE DISORDER [None]
  - ANXIETY [None]
  - ATRIAL SEPTAL DEFECT [None]
  - CARDIAC FAILURE [None]
  - CARDIAC VALVE DISEASE [None]
  - COUGH [None]
  - CYANOSIS [None]
  - DRUG EXPOSURE DURING PREGNANCY [None]
  - DYSPNOEA [None]
  - FOETAL CARDIAC DISORDER [None]
  - HEART DISEASE CONGENITAL [None]
  - PAIN [None]
  - PULMONARY HAEMORRHAGE [None]
  - PULMONARY OEDEMA [None]
  - PULMONARY VASCULAR DISORDER [None]
  - RESPIRATORY ARREST [None]
  - SCAR [None]
  - VISCERAL CONGESTION [None]
